FAERS Safety Report 24526268 (Version 2)
Quarter: 2025Q1

REPORT INFORMATION
  Report Type: Spontaneous
  Country: US (occurrence: US)
  Receive Date: 20241021
  Receipt Date: 20250307
  Transmission Date: 20250409
  Serious: No
  Sender: SANOFI AVENTIS
  Company Number: US-SA-2024SA294558

PATIENT
  Age: 65 Year
  Sex: Female

DRUGS (19)
  1. KEVZARA [Suspect]
     Active Substance: SARILUMAB
     Indication: Rheumatoid arthritis
     Dosage: 200 MG, QOW
     Route: 058
     Dates: start: 20240818
  2. MOUNJARO [Suspect]
     Active Substance: TIRZEPATIDE
     Indication: Blood glucose abnormal
  3. NOVOLOG [Concomitant]
     Active Substance: INSULIN ASPART
  4. HYDROXYCHLOROQUINE [Concomitant]
     Active Substance: HYDROXYCHLOROQUINE
  5. LISINOPRIL H [Concomitant]
  6. CEVIMELINE HYDROCHLORIDE [Concomitant]
     Active Substance: CEVIMELINE HYDROCHLORIDE
  7. OMEPRAZOLE [Concomitant]
     Active Substance: OMEPRAZOLE
  8. NORTRIPTYLINE [Concomitant]
     Active Substance: NORTRIPTYLINE
  9. PREGABALIN [Concomitant]
     Active Substance: PREGABALIN
  10. ESTROGEL [Concomitant]
     Active Substance: ESTRADIOL
  11. METHOCARBAMOL [Concomitant]
     Active Substance: METHOCARBAMOL
  12. MELOXICAM [Concomitant]
     Active Substance: MELOXICAM
  13. VITAMIN D3 [Concomitant]
     Active Substance: CHOLECALCIFEROL
  14. LEVOTHYROXINE [Concomitant]
     Active Substance: LEVOTHYROXINE
  15. ASPIRIN [Concomitant]
     Active Substance: ASPIRIN
  16. TOUJEO MAX [Concomitant]
     Active Substance: INSULIN GLARGINE
  17. VITAMIN B12 [Concomitant]
     Active Substance: CYANOCOBALAMIN
  18. DULOXETINE [Concomitant]
     Active Substance: DULOXETINE
  19. JARDIANCE [Concomitant]
     Active Substance: EMPAGLIFLOZIN

REACTIONS (14)
  - Drug hypersensitivity [Not Recovered/Not Resolved]
  - Blood glucose abnormal [Recovering/Resolving]
  - Blood cholesterol increased [Unknown]
  - Dyspnoea [Unknown]
  - Gait disturbance [Unknown]
  - Arthralgia [Unknown]
  - Rash pruritic [Unknown]
  - Scratch [Unknown]
  - Depression [Unknown]
  - Decreased interest [Unknown]
  - Insomnia [Unknown]
  - Decreased appetite [Unknown]
  - Weight decreased [Unknown]
  - Product dose omission in error [Unknown]

NARRATIVE: CASE EVENT DATE: 20240101
